FAERS Safety Report 12385974 (Version 1)
Quarter: 2016Q2

REPORT INFORMATION
  Report Type: Spontaneous
  Country: US (occurrence: US)
  Receive Date: 20160519
  Receipt Date: 20160519
  Transmission Date: 20160815
  Serious: No
  Sender: FDA-Public Use
  Company Number: ADR-2015-01199

PATIENT
  Age: 43 Year
  Sex: Male

DRUGS (7)
  1. BACLOFEN. [Suspect]
     Active Substance: BACLOFEN
     Dosage: 245 MCG/DAY
     Route: 037
     Dates: start: 20150218
  2. DILAUDID [Suspect]
     Active Substance: HYDROMORPHONE HYDROCHLORIDE
     Dosage: 2.8 MG/DAY
     Route: 037
     Dates: start: 20150218
  3. BUPIVICAINE [Suspect]
     Active Substance: BUPIVACAINE
     Dosage: 0.7 MG/DAY
     Route: 037
     Dates: start: 20150218
  4. BACLOFEN. [Suspect]
     Active Substance: BACLOFEN
     Dosage: 250.35 MCG/DAY
     Route: 037
     Dates: start: 20150603
  5. DILAUDID [Suspect]
     Active Substance: HYDROMORPHONE HYDROCHLORIDE
     Dosage: 1.8776 MG/DAY
     Route: 037
     Dates: start: 20150603
  6. BUPIVICAINE [Suspect]
     Active Substance: BUPIVACAINE
     Dosage: 0.3129 MG/DAY
     Route: 037
     Dates: start: 20150603
  7. SHOULDER INJECTIONS [Suspect]
     Active Substance: UNSPECIFIED INGREDIENT

REACTIONS (3)
  - Musculoskeletal discomfort [Unknown]
  - Arthralgia [Unknown]
  - No therapeutic response [Unknown]
